FAERS Safety Report 24938778 (Version 1)
Quarter: 2025Q1

REPORT INFORMATION
  Report Type: Spontaneous
  Country: US (occurrence: None)
  Receive Date: 20250206
  Receipt Date: 20250206
  Transmission Date: 20250409
  Serious: Yes (Hospitalization, Disabling)
  Sender: FDA-CTU
  Company Number: None

PATIENT
  Age: 92 Year
  Sex: Male
  Weight: 75 kg

DRUGS (1)
  1. ELIGARD [Suspect]
     Active Substance: LEUPROLIDE ACETATE
     Indication: Prostate cancer
     Route: 058
     Dates: start: 20230928, end: 20240326

REACTIONS (5)
  - Fall [None]
  - Loss of personal independence in daily activities [None]
  - Cognitive disorder [None]
  - Emotional disorder [None]
  - Personality change [None]

NARRATIVE: CASE EVENT DATE: 20230928
